FAERS Safety Report 19182875 (Version 1)
Quarter: 2021Q2

REPORT INFORMATION
  Report Type: Spontaneous
  Country: FR (occurrence: FR)
  Receive Date: 20210426
  Receipt Date: 20210426
  Transmission Date: 20210717
  Serious: Yes (Death)
  Sender: FDA-Public Use
  Company Number: FR-ROCHE-2817971

PATIENT
  Age: 77 Year
  Sex: Male
  Weight: 40 kg

DRUGS (5)
  1. ATEZOLIZUMAB. [Suspect]
     Active Substance: ATEZOLIZUMAB
     Dosage: PHASE D^ENTRETIEN
     Route: 041
     Dates: start: 20210301, end: 20210301
  2. ATEZOLIZUMAB. [Suspect]
     Active Substance: ATEZOLIZUMAB
     Dosage: 1 CURE TOUTES LES 3 SEMAINES PENDANT 4 CYCLES PUIS PHASE D^ENTRETIEN
     Route: 041
     Dates: start: 20201207, end: 20201207
  3. ATEZOLIZUMAB. [Suspect]
     Active Substance: ATEZOLIZUMAB
     Dosage: 1 CURE TOUTES LES 3 SEMAINES PENDANT 4 CYCLES PUIS PHASE D^ENTRETIEN
     Route: 041
     Dates: start: 20210118, end: 20210118
  4. ATEZOLIZUMAB. [Suspect]
     Active Substance: ATEZOLIZUMAB
     Indication: LUNG ADENOCARCINOMA
     Dosage: 1 CURE TOUTES LES 3 SEMAINES PENDANT 4 CYCLES PUIS PHASE D^ENTRETIEN
     Route: 041
     Dates: start: 20210208, end: 20210208
  5. ATEZOLIZUMAB. [Suspect]
     Active Substance: ATEZOLIZUMAB
     Dosage: 1 CURE TOUTES LES 3 SEMAINES PENDANT 4 CYCLES PUIS PHASE D^ENTRETIEN
     Route: 041
     Dates: start: 20201228, end: 20201228

REACTIONS (1)
  - Encephalopathy [Fatal]

NARRATIVE: CASE EVENT DATE: 20210317
